FAERS Safety Report 8026934-7 (Version None)
Quarter: 2012Q1

REPORT INFORMATION
  Report Type: 
  Country: None (occurrence: None)
  Receive Date: 20120103
  Receipt Date: 20111223
  Transmission Date: 20120608
  Serious: Yes (Death)
  Sender: FDA-Public Use
  Company Number: 2010SP026142

PATIENT
  Age: 45 Year
  Sex: Male
  Weight: 73.3 kg

DRUGS (19)
  1. LYRICA [Concomitant]
  2. DOMPERIDONE [Concomitant]
  3. TRAMADOL HCL [Concomitant]
  4. IRBESARTAN [Concomitant]
  5. MEGESTROL ACETATE [Concomitant]
  6. CHOLINE ALFOSCERATE [Concomitant]
  7. MAGNESIUM OXIDE [Concomitant]
  8. VALPROATE SODIUM [Concomitant]
  9. NORTRIPTYLINE HCL [Concomitant]
  10. TRIMETHOPRIM [Concomitant]
  11. RAMOSETRON [Concomitant]
  12. DEXAMETHASONE TAB [Concomitant]
  13. AMLODIPINE BESYLATE [Concomitant]
  14. CETIRIZINE [Concomitant]
  15. TEMODAL [Suspect]
     Indication: GLIOBLASTOMA MULTIFORME
     Dosage: 140 MG; QD; PO, 300 MG; QD; PO
     Route: 048
     Dates: start: 20080923, end: 20081117
  16. TEMODAL [Suspect]
     Indication: GLIOBLASTOMA MULTIFORME
     Dosage: 140 MG; QD; PO, 300 MG; QD; PO
     Route: 048
     Dates: start: 20081213, end: 20081218
  17. IBUPROFEN [Concomitant]
  18. PREDNISOLONE [Concomitant]
  19. TOPIRAMATE [Concomitant]

REACTIONS (4)
  - METABOLIC ACIDOSIS [None]
  - BLOOD GLUCOSE INCREASED [None]
  - BLOOD SODIUM INCREASED [None]
  - BLOOD POTASSIUM INCREASED [None]
